FAERS Safety Report 5837221-7 (Version None)
Quarter: 2008Q3

REPORT INFORMATION
  Report Type: 
  Country: None (occurrence: None)
  Receive Date: 20080807
  Receipt Date: 20080804
  Transmission Date: 20090109
  Serious: Yes (Hospitalization)
  Sender: FDA-Public Use
  Company Number: JP-SANOFI-SYNTHELABO-A01200809119

PATIENT
  Age: 58 Year
  Sex: Male

DRUGS (6)
  1. IRINOTECAN HCL [Suspect]
     Indication: RECTAL CANCER
     Dosage: UNK
     Route: 041
     Dates: start: 20080709, end: 20080709
  2. LEUCOVORIN CALCIUM [Suspect]
     Dosage: UNK
     Route: 041
     Dates: start: 20080709, end: 20080709
  3. FLUOROURACIL [Suspect]
     Dosage: UNK
     Route: 040
     Dates: start: 20080709, end: 20080709
  4. FLUOROURACIL [Suspect]
     Dosage: UNK
     Route: 041
     Dates: start: 20080701, end: 20080701
  5. ELPLAT [Suspect]
     Indication: RECTAL CANCER
     Dosage: UNK
     Route: 041
     Dates: start: 20080512, end: 20080512
  6. AVASTIN [Suspect]
     Dosage: UNK
     Route: 041

REACTIONS (2)
  - NECROTISING FASCIITIS [None]
  - SEPSIS [None]
